FAERS Safety Report 4572496-6 (Version None)
Quarter: 2005Q1

REPORT INFORMATION
  Report Type: 
  Country: None (occurrence: None)
  Receive Date: 20050207
  Receipt Date: 20041006
  Transmission Date: 20050727
  Serious: Yes (Life-Threatening, Hospitalization, Disabling)
  Sender: FDA-Public Use
  Company Number: US-MERCK-0410USA00847

PATIENT
  Age: 74 Year
  Sex: Female
  Weight: 82 kg

DRUGS (5)
  1. VIOXX [Suspect]
     Indication: RHEUMATOID ARTHRITIS
     Route: 048
     Dates: start: 20000218
  2. VIOXX [Suspect]
     Route: 048
     Dates: end: 20010101
  3. VIOXX [Suspect]
     Route: 048
     Dates: start: 20010601, end: 20020101
  4. VIOXX [Suspect]
     Route: 048
     Dates: start: 20020603, end: 20020101
  5. VIOXX [Suspect]
     Route: 048
     Dates: start: 20021011, end: 20030401

REACTIONS (17)
  - ARTHRALGIA [None]
  - BLOOD CHOLESTEROL INCREASED [None]
  - CAROTID ARTERY STENOSIS [None]
  - CERUMEN IMPACTION [None]
  - FACIAL BONES FRACTURE [None]
  - HYPERLIPIDAEMIA [None]
  - JOINT SPRAIN [None]
  - LIVER DISORDER [None]
  - MYALGIA [None]
  - RENAL DISORDER [None]
  - RHINITIS ALLERGIC [None]
  - SINUS HEADACHE [None]
  - SINUSITIS [None]
  - STOMACH DISCOMFORT [None]
  - SYNCOPE [None]
  - TOOTH FRACTURE [None]
  - UPPER RESPIRATORY TRACT INFECTION [None]
